FAERS Safety Report 4750987-2 (Version None)
Quarter: 2005Q3

REPORT INFORMATION
  Report Type: 
  Country: None (occurrence: None)
  Receive Date: 20050824
  Receipt Date: 20050624
  Transmission Date: 20060218
  Serious: No
  Sender: FDA-Public Use
  Company Number: JP-SOLVAY-00305002098

PATIENT
  Age: 785 Month
  Sex: Male

DRUGS (11)
  1. PARLODEL [Concomitant]
     Indication: ILL-DEFINED DISORDER
     Dosage: DAILY DOSE: 5 MILLIGRAM(S)
     Route: 048
     Dates: start: 20020501, end: 20020601
  2. PARLODEL [Concomitant]
     Dosage: DAILY DOSE: 7.5 MILLIGRAM(S)
     Route: 048
     Dates: start: 20020601, end: 20050501
  3. PARLODEL [Concomitant]
     Dosage: DAILY DOSE: 5 MILLIGRAM(S)
     Route: 048
     Dates: start: 20050501, end: 20050601
  4. PARLODEL [Concomitant]
     Dosage: DAILY DOSE: 7.5 MILLIGRAM(S)
     Route: 048
     Dates: start: 20050601
  5. LUVOX [Suspect]
     Indication: DEPRESSION
     Dosage: DAILY DOSE: 75 MILLIGRAM(S)
     Route: 048
     Dates: end: 20020501
  6. LUVOX [Suspect]
     Dosage: DAILY DOSE: 50 MILLIGRAM(S)
     Route: 048
     Dates: start: 20020501, end: 20030801
  7. LUVOX [Suspect]
     Dosage: DAILY DOSE: 25 MILLIGRAM(S)
     Route: 048
     Dates: start: 20030801
  8. ARTANE [Concomitant]
     Indication: ILL-DEFINED DISORDER
     Dosage: DAILY DOSE: 4 MILLIGRAM(S)
     Route: 048
     Dates: start: 20030401
  9. LORAZEPAM [Suspect]
     Indication: ILL-DEFINED DISORDER
     Dosage: DAILY DOSE: 1.5 MILLIGRAM(S)
     Route: 048
     Dates: end: 20020401
  10. LORAZEPAM [Suspect]
     Dosage: DAILY DOSE: 1 MILLIGRAM(S)
     Route: 048
     Dates: start: 20020401, end: 20021001
  11. LIPOVAS [Concomitant]
     Indication: ILL-DEFINED DISORDER
     Dosage: DAILY DOSE: 5 MILLIGRAM(S)
     Route: 048
     Dates: start: 20031201

REACTIONS (5)
  - BINOCULAR EYE MOVEMENT DISORDER [None]
  - EYELID PTOSIS [None]
  - MUSCLE RIGIDITY [None]
  - NERVOUSNESS [None]
  - TRISMUS [None]
